FAERS Safety Report 19786808 (Version 1)
Quarter: 2021Q3

REPORT INFORMATION
  Report Type: Spontaneous
  Country: US (occurrence: US)
  Receive Date: 20210903
  Receipt Date: 20210903
  Transmission Date: 20211014
  Serious: No
  Sender: FDA-Public Use
  Company Number: US-BAYER-2021-203440

PATIENT
  Sex: Female

DRUGS (1)
  1. GADAVIST [Suspect]
     Active Substance: GADOBUTROL
     Indication: MAGNETIC RESONANCE IMAGING BREAST
     Dosage: UNK UNK, ONCE
     Dates: start: 20210811, end: 20210811

REACTIONS (4)
  - Throat irritation [None]
  - Skin exfoliation [None]
  - Pruritus [None]
  - Erythema [None]
